FAERS Safety Report 8560395-4 (Version None)
Quarter: 2012Q3

REPORT INFORMATION
  Report Type: 
  Country: None (occurrence: None)
  Receive Date: 20120802
  Receipt Date: 20120724
  Transmission Date: 20120928
  Serious: No
  Sender: FDA-Public Use
  Company Number: US-UCBSA-058116

PATIENT
  Age: 28 Year
  Sex: Female

DRUGS (8)
  1. FOLIC ACID [Concomitant]
     Route: 048
     Dates: start: 20110901
  2. KEPPRA [Suspect]
     Indication: EPILEPSY
     Dosage: 4.5 YEARS
     Route: 048
  3. MULTI-VITAMINS [Concomitant]
     Indication: PREGNANCY
     Dosage: 1 TABLET DAILY
     Route: 048
     Dates: start: 20110901
  4. FERROUS SULFATE TAB [Concomitant]
     Route: 048
  5. KEFLEX [Concomitant]
     Dosage: 500 MG,
     Route: 048
  6. IBU [Concomitant]
     Dosage: 600 MG, BY MOUTH, ONCE
     Route: 048
  7. TYLENOL W/ CODEINE [Concomitant]
     Dosage: 300 MG - 30 MG, 1 TAB BY MOUTH, ONCE
     Route: 048
  8. LEVETIRACETAM [Concomitant]
     Indication: EPILEPSY

REACTIONS (2)
  - ANAEMIA [None]
  - PREGNANCY [None]
